FAERS Safety Report 6988481-0 (Version None)
Quarter: 2010Q3

REPORT INFORMATION
  Report Type: 
  Country: None (occurrence: None)
  Receive Date: 20100916
  Receipt Date: 20100913
  Transmission Date: 20110219
  Serious: Yes (Other)
  Sender: FDA-Public Use
  Company Number: BE-TEVA-248395ISR

PATIENT
  Age: 64 Year
  Sex: Female

DRUGS (2)
  1. ALENDRONATE SODIUM [Suspect]
     Indication: OSTEOLYSIS
  2. ALENDRONATE SODIUM [Suspect]
     Indication: PAIN

REACTIONS (2)
  - FRACTURE [None]
  - PAIN IN EXTREMITY [None]
